FAERS Safety Report 8613763 (Version 4)
Quarter: 2014Q1

REPORT INFORMATION
  Report Type: Spontaneous
  Country: US (occurrence: US)
  Receive Date: 20120614
  Receipt Date: 20140108
  Transmission Date: 20141002
  Serious: Yes (Hospitalization, Other)
  Sender: FDA-Public Use
  Company Number: US-ASTRAZENECA-2012SE36208

PATIENT
  Age: 59 Year
  Sex: Female
  Weight: 106.6 kg

DRUGS (33)
  1. NEXIUM [Suspect]
     Indication: GASTROOESOPHAGEAL REFLUX DISEASE
     Route: 048
     Dates: start: 20050819
  2. PROTONIX [Concomitant]
  3. ACIPHEX [Concomitant]
  4. TUMS [Concomitant]
  5. ALKA SELTZER [Concomitant]
  6. PEPTO BISMOL [Concomitant]
  7. MILK OF MAGNESIA [Concomitant]
  8. AMARYL [Concomitant]
     Dates: start: 20041002
  9. ATENOLOL [Concomitant]
  10. HYZAAR [Concomitant]
     Dosage: 25-100 MG DAILY
     Route: 048
  11. JANUVIA [Concomitant]
  12. GLUCOPHAGE [Concomitant]
     Route: 048
  13. LIPID [Concomitant]
  14. LAMICTAL [Concomitant]
     Route: 048
  15. ALBUTEROL [Concomitant]
  16. ADVAIR [Concomitant]
  17. ASPIRIN [Concomitant]
  18. BENTYL [Concomitant]
  19. GANUVIL [Concomitant]
     Route: 048
  20. WELCHOL [Concomitant]
     Route: 048
  21. ACTOS [Concomitant]
  22. LOVASTATIN [Concomitant]
  23. NITROFURANTOIN [Concomitant]
  24. OMEPRAZOLE [Concomitant]
     Dates: start: 20041222
  25. LESCOL [Concomitant]
     Dates: start: 20041222
  26. ATACAND-HCT [Concomitant]
     Dosage: 16/ 12.5
  27. DIAZEPAM [Concomitant]
     Dates: start: 20060412
  28. INDOMETHACIN [Concomitant]
     Dates: start: 20060412
  29. WELLBUTRIN [Concomitant]
  30. GEMFIBROZIL [Concomitant]
     Dates: start: 20070814
  31. LUNESTA [Concomitant]
     Dates: start: 20080219
  32. PRAVASTATIN SODIUM [Concomitant]
     Dates: start: 20080807
  33. LAMOTRIGINE [Concomitant]
     Dates: start: 20080815

REACTIONS (20)
  - Rib fracture [Unknown]
  - Fall [Unknown]
  - Oedema peripheral [Unknown]
  - Joint dislocation [Unknown]
  - Convulsion [Unknown]
  - Osteoporosis [Unknown]
  - Bone density decreased [Unknown]
  - Bronchitis [Unknown]
  - Chronic sinusitis [Unknown]
  - Breast cyst [Unknown]
  - Bone loss [Unknown]
  - Scoliosis [Unknown]
  - Upper limb fracture [Unknown]
  - Rotator cuff syndrome [Unknown]
  - Calcium deficiency [Unknown]
  - Vitamin D deficiency [Unknown]
  - Cataract [Unknown]
  - Arthritis [Unknown]
  - Headache [Unknown]
  - Depression [Unknown]
